FAERS Safety Report 10652013 (Version 1)
Quarter: 2014Q4

REPORT INFORMATION
  Report Type: Spontaneous
  Country: GB (occurrence: None)
  Receive Date: 20141205
  Receipt Date: 20141205
  Transmission Date: 20150529
  Serious: Yes (Other)
  Sender: FDA-Public Use
  Company Number: 2014GMK009750

PATIENT
  Age: 54 Year
  Sex: Female
  Weight: 127 kg

DRUGS (5)
  1. PRAMIPEXOLE [Suspect]
     Active Substance: PRAMIPEXOLE
     Indication: RESTLESS LEGS SYNDROME
     Route: 048
     Dates: start: 2013
  2. LANSOPRAZOLE(LANSOPRAZOLE) [Concomitant]
  3. DULOXETINE(DULOXETINE) [Concomitant]
  4. LEVOTHYROXINE SODIUM(LEVOTHYROXINE SODIUM) [Concomitant]
  5. TRAMADOL(TRAMADOL) [Concomitant]
     Active Substance: TRAMADOL

REACTIONS (3)
  - Compulsive shopping [None]
  - Impulsive behaviour [None]
  - Obsessive-compulsive disorder [None]

NARRATIVE: CASE EVENT DATE: 2013
